FAERS Safety Report 8067935-2 (Version None)
Quarter: 2012Q1

REPORT INFORMATION
  Report Type: 
  Country: None (occurrence: None)
  Receive Date: 20120124
  Receipt Date: 20110913
  Transmission Date: 20120608
  Serious: No
  Sender: FDA-Public Use
  Company Number: US-AMGEN-USASP2011046932

PATIENT
  Age: 66 Year
  Sex: Female

DRUGS (2)
  1. VITAMIN D [Concomitant]
     Dosage: 1 IU, UNK
  2. PROLIA [Suspect]
     Indication: OSTEOPOROSIS POSTMENOPAUSAL
     Dosage: 60 MG, Q6MO
     Dates: start: 20110629

REACTIONS (2)
  - BACK PAIN [None]
  - PAIN IN JAW [None]
